FAERS Safety Report 10756887 (Version 3)
Quarter: 2015Q2

REPORT INFORMATION
  Report Type: Spontaneous
  Country: US (occurrence: US)
  Receive Date: 20150203
  Receipt Date: 20150421
  Transmission Date: 20150821
  Serious: No
  Sender: FDA-Public Use
  Company Number: US-LEO PHARMA-232155

PATIENT
  Age: 61 Year
  Sex: Male

DRUGS (1)
  1. PICATO [Suspect]
     Active Substance: INGENOL MEBUTATE
     Indication: ACTINIC KERATOSIS
     Route: 061
     Dates: start: 20150119, end: 20150121

REACTIONS (11)
  - Eye pruritus [Recovered/Resolved]
  - Application site pruritus [Recovered/Resolved]
  - Eye swelling [Not Recovered/Not Resolved]
  - Eyelid ptosis [Not Recovered/Not Resolved]
  - Application site scab [Recovered/Resolved]
  - Application site pain [Recovered/Resolved]
  - Accidental exposure to product [Unknown]
  - Sebaceous gland disorder [Unknown]
  - Ocular hyperaemia [Recovered/Resolved]
  - Eyelid oedema [Unknown]
  - Application site erythema [Recovered/Resolved]

NARRATIVE: CASE EVENT DATE: 20150120
